FAERS Safety Report 9269725 (Version 2)
Quarter: 2016Q2

REPORT INFORMATION
  Report Type: Report from Study
  Country: DE (occurrence: DE)
  Receive Date: 20130503
  Receipt Date: 20160525
  Transmission Date: 20160815
  Serious: Yes (Hospitalization)
  Sender: FDA-Public Use
  Company Number: PHHO2013DE005791

PATIENT
  Age: 61 Year
  Sex: Male
  Weight: 89 kg

DRUGS (11)
  1. SIMULECT [Concomitant]
     Active Substance: BASILIXIMAB
     Indication: RENAL TRANSPLANT
     Dosage: 20 MG, ONCE/SINGLE
     Route: 042
     Dates: start: 20130222, end: 20130226
  2. PANTOZOL [Concomitant]
     Active Substance: PANTOPRAZOLE SODIUM
     Indication: PROPHYLAXIS AGAINST GASTROINTESTINAL ULCER
     Dosage: 40 MG, ONCE/SINGLE
     Route: 048
     Dates: start: 20130223
  3. DECORTIN [Concomitant]
     Active Substance: PREDNISONE
     Indication: RENAL TRANSPLANT
     Dosage: 20 MG, ONCE/SINGLE
     Route: 048
     Dates: start: 20130222, end: 20130317
  4. TACROLIMUS. [Suspect]
     Active Substance: TACROLIMUS
     Indication: RENAL TRANSPLANT
     Dosage: 10 MG, BID
     Route: 048
     Dates: start: 20130223
  5. CELLCEPT [Concomitant]
     Active Substance: MYCOPHENOLATE MOFETIL\MYCOPHENOLATE MOFETIL HYDROCHLORIDE
     Dosage: UNK
     Route: 048
     Dates: start: 20130424
  6. DECORTIN [Concomitant]
     Active Substance: PREDNISONE
     Dosage: UNK
     Route: 048
     Dates: start: 20130420
  7. REDUCTO SPEZIAL [Concomitant]
     Active Substance: POTASSIUM PHOSPHATE, MONOBASIC\SODIUM PHOSPHATE, DIBASIC, ANHYDROUS
     Indication: HYPOPHOSPHATAEMIA
     Dosage: 6 DF (TABLETS)
     Route: 048
     Dates: start: 20130408
  8. TORASEMIDE [Suspect]
     Active Substance: TORSEMIDE
     Indication: PRODUCT USED FOR UNKNOWN INDICATION
     Dosage: 5 MG, UNK
     Route: 048
     Dates: start: 20130408, end: 20130423
  9. CELLCEPT [Concomitant]
     Active Substance: MYCOPHENOLATE MOFETIL\MYCOPHENOLATE MOFETIL HYDROCHLORIDE
     Indication: RENAL TRANSPLANT
     Dosage: 1000 UG, BID
     Route: 048
     Dates: start: 20130223, end: 20130317
  10. SPIRIVA [Concomitant]
     Active Substance: TIOTROPIUM BROMIDE MONOHYDRATE
     Indication: CHRONIC OBSTRUCTIVE PULMONARY DISEASE
     Dosage: 18 UG, UNK
     Route: 048
     Dates: start: 20071130
  11. L-THYROX [Concomitant]
     Active Substance: LEVOTHYROXINE SODIUM
     Indication: HYPERTHYROIDISM
     Dosage: 75 MG/DAY
     Route: 048
     Dates: start: 20080109

REACTIONS (2)
  - Lymphatic disorder [Recovered/Resolved]
  - Sudden hearing loss [Recovered/Resolved]

NARRATIVE: CASE EVENT DATE: 20130318
